FAERS Safety Report 13337912 (Version 1)
Quarter: 2017Q1

REPORT INFORMATION
  Report Type: Spontaneous
  Country: US (occurrence: US)
  Receive Date: 20170315
  Receipt Date: 20170315
  Transmission Date: 20170428
  Serious: Yes (Hospitalization)
  Sender: FDA-Public Use
  Company Number: US-ELI_LILLY_AND_COMPANY-US201608000956

PATIENT
  Sex: Female
  Weight: 123 kg

DRUGS (3)
  1. CYMBALTA [Suspect]
     Active Substance: DULOXETINE HYDROCHLORIDE
     Indication: PRODUCT USED FOR UNKNOWN INDICATION
     Dosage: UNK, UNKNOWN
     Route: 048
  2. CYMBALTA [Suspect]
     Active Substance: DULOXETINE HYDROCHLORIDE
     Dosage: 60 MG, BID
     Route: 048
     Dates: end: 20140513
  3. GABAPENTIN. [Suspect]
     Active Substance: GABAPENTIN
     Indication: PRODUCT USED FOR UNKNOWN INDICATION
     Dosage: 300 MG, TID
     Route: 048

REACTIONS (26)
  - Sensory disturbance [Unknown]
  - Fatigue [Unknown]
  - Dizziness [Unknown]
  - Anxiety [Unknown]
  - Vomiting [Unknown]
  - Headache [Unknown]
  - Diarrhoea [Unknown]
  - Migraine [Unknown]
  - Gastroenteritis [Unknown]
  - Intentional product misuse [Unknown]
  - Affect lability [Unknown]
  - Paraesthesia [Unknown]
  - Lethargy [Unknown]
  - Abdominal pain [Unknown]
  - Confusional state [Unknown]
  - Dysphoria [Unknown]
  - Agitation [Unknown]
  - Pyrexia [Unknown]
  - Tremor [Unknown]
  - Drug withdrawal syndrome [Unknown]
  - Insomnia [Unknown]
  - Nausea [Unknown]
  - Palpitations [Unknown]
  - Chest pain [Unknown]
  - Vertigo [Unknown]
  - Hyperhidrosis [Unknown]
